FAERS Safety Report 21054086 (Version 6)
Quarter: 2023Q1

REPORT INFORMATION
  Report Type: Spontaneous
  Country: JP (occurrence: JP)
  Receive Date: 20220707
  Receipt Date: 20230310
  Transmission Date: 20230417
  Serious: Yes (Life-Threatening, Other)
  Sender: FDA-Public Use
  Company Number: JP-MTPC-MTPC2022-0015349

PATIENT
  Age: 56 Year
  Sex: Male

DRUGS (17)
  1. REMICADE [Suspect]
     Active Substance: INFLIXIMAB
     Indication: Colitis ulcerative
     Dosage: 5 MILLIGRAM/KILOGRAM, QD
     Route: 041
     Dates: start: 20220312
  2. REMICADE [Suspect]
     Active Substance: INFLIXIMAB
     Dosage: 5 MILLIGRAM/KILOGRAM, QD
     Route: 041
     Dates: start: 20220415, end: 20220415
  3. REMICADE [Suspect]
     Active Substance: INFLIXIMAB
     Dosage: UNK
     Route: 041
  4. REMICADE [Suspect]
     Active Substance: INFLIXIMAB
     Dosage: 5 MILLIGRAM/KILOGRAM, QD
     Route: 041
     Dates: start: 20220803, end: 20220803
  5. REMICADE [Suspect]
     Active Substance: INFLIXIMAB
     Dosage: UNK
     Route: 041
     Dates: start: 20220810, end: 20220810
  6. PREDONINE [Concomitant]
     Active Substance: PREDNISOLONE
     Indication: Colitis ulcerative
     Dosage: 30 DOSAGE FORM, QD
     Route: 048
     Dates: start: 202112
  7. PREDONINE [Concomitant]
     Active Substance: PREDNISOLONE
     Dosage: 5 DOSAGE FORM, QD
     Route: 048
     Dates: start: 202202
  8. PREDONINE [Concomitant]
     Active Substance: PREDNISOLONE
     Dosage: 30 DOSAGE FORM, QD
     Route: 048
     Dates: start: 202204
  9. PREDONINE [Concomitant]
     Active Substance: PREDNISOLONE
     Dosage: 20 MILLIGRAM, QD
     Route: 048
     Dates: start: 20220502, end: 20220508
  10. PREDONINE [Concomitant]
     Active Substance: PREDNISOLONE
     Dosage: 15 MILLIGRAM, QD
     Route: 048
     Dates: start: 20220509, end: 20220514
  11. PREDONINE [Concomitant]
     Active Substance: PREDNISOLONE
     Dosage: 10 MILLIGRAM, QD
     Route: 048
     Dates: start: 20220515
  12. IMURAN [Concomitant]
     Active Substance: AZATHIOPRINE
     Dosage: UNK
     Route: 065
     Dates: start: 202201
  13. ASACOL [Concomitant]
     Active Substance: MESALAMINE
     Indication: Colitis ulcerative
     Dosage: 3600 MILLIGRAM, QD
     Route: 048
     Dates: start: 20220322
  14. CALONAL [Concomitant]
     Active Substance: ACETAMINOPHEN
     Dosage: 700 MILLIGRAM, QD
     Route: 065
     Dates: start: 20220810
  15. EPINASTINE [Concomitant]
     Active Substance: EPINASTINE
     Dosage: 20 MILLIGRAM, QD
     Route: 065
     Dates: start: 20220810
  16. SODIUM CHLORIDE [Concomitant]
     Active Substance: SODIUM CHLORIDE
     Dosage: UNK
     Route: 041
  17. HYDROCORTISONE SODIUM SUCCINATE [Concomitant]
     Active Substance: HYDROCORTISONE SODIUM SUCCINATE
     Route: 051

REACTIONS (3)
  - Necrotising fasciitis [Recovering/Resolving]
  - Sepsis [Recovered/Resolved]
  - Infusion related reaction [Recovered/Resolved]

NARRATIVE: CASE EVENT DATE: 20220502
